FAERS Safety Report 16871568 (Version 3)
Quarter: 2021Q4

REPORT INFORMATION
  Report Type: Spontaneous
  Country: US (occurrence: US)
  Receive Date: 20191001
  Receipt Date: 20211025
  Transmission Date: 20220304
  Serious: Yes (Disabling, Other)
  Sender: FDA-Public Use
  Company Number: US-TEVA-2019-US-1115067

PATIENT
  Age: 68 Year
  Sex: Female
  Weight: 52.16 kg

DRUGS (14)
  1. DOCETAXEL [Suspect]
     Active Substance: DOCETAXEL
     Indication: Breast cancer female
     Dosage: NUMBER OF CYCLE - 06, FREQUENCY - EVERY THREE WEEKS,1-2 CYCLES 110 MG, 3-6 CYCLES-DOCETAXEL-90 MG
     Route: 042
     Dates: start: 20131119, end: 20140304
  2. CARBOPLATIN [Suspect]
     Active Substance: CARBOPLATIN
     Indication: Breast cancer female
     Dosage: CYCLES - 06, FREQUENCY - EVERY THREE WEEKS, 1-2 CYCLES 470 MG,3-6 CYCLES-CARBOPLATIN-350 MG
     Route: 042
     Dates: start: 20131119, end: 20140304
  3. DOCETAXEL [Suspect]
     Active Substance: DOCETAXEL
     Indication: Breast cancer female
     Dosage: NUMBER OF CYCLE - 06, FREQUENCY - EVERY THREE WEEKS, 1-2 CYCLES 110 MG 3-6 CYCLES-DOCETAXEL-90 MG
     Route: 042
     Dates: start: 20131119, end: 20140304
  4. DOCETAXEL [Suspect]
     Active Substance: DOCETAXEL
     Indication: Breast cancer female
     Dosage: NUMBER OF CYCLE - 06, FREQUENCY - EVERY THREE WEEKS, 1-2 CYCLES 110 MG,3-6 CYCLES-DOCETAXEL-90 MG
     Route: 042
     Dates: start: 20131119, end: 20140304
  5. DOCETAXEL [Suspect]
     Active Substance: DOCETAXEL
     Indication: Breast cancer female
     Dosage: NUMBER OF CYCLE - 06, FREQUENCY - EVERY THREE WEEKS, 1-2 CYCLES 110 MG,3-6 CYCLES-DOCETAXEL-90 MG
     Route: 042
     Dates: start: 20131119, end: 20140304
  6. TAXOTERE [Suspect]
     Active Substance: DOCETAXEL
     Indication: Breast cancer female
     Dosage: NUMBER OF CYCLE - 06, FREQUENCY - EVERY THREE WEEKS, 1-2 CYCLES 110 MG,3-6 CYCLES-DOCETAXEL-90 MG
     Route: 042
     Dates: start: 20131119, end: 20140304
  7. HERCEPTIN [Suspect]
     Active Substance: TRASTUZUMAB
     Indication: Breast cancer female
     Dosage: 1-2 CYCLES- HERCEPTIN-405 MG,3-6 CYCLES- HERCEPTIN-300 MG
     Route: 042
     Dates: start: 20131119, end: 20140304
  8. NEXIUM [Concomitant]
     Active Substance: ESOMEPRAZOLE MAGNESIUM
     Dosage: 40 MILLIGRAM DAILY; DELAYED RELEASE CAPSULE
     Route: 048
     Dates: start: 20060101
  9. PREDNISONE [Concomitant]
     Active Substance: PREDNISONE
     Dosage: .25 MILLIGRAM DAILY;
     Route: 048
     Dates: start: 20121115
  10. COLACE [Concomitant]
     Active Substance: DOCUSATE SODIUM
     Route: 065
     Dates: start: 20060101
  11. ACTONEL [Concomitant]
     Active Substance: RISEDRONATE SODIUM
     Dosage: 150 MILLIGRAM DAILY;
     Route: 048
     Dates: start: 20060101
  12. SIMETHICONE (DIMETHICONE) [Concomitant]
     Active Substance: DIMETHICONE
     Dosage: 62.5 MILLIGRAM DAILY;
     Route: 048
     Dates: start: 20060101
  13. SYMBICORT [Concomitant]
     Active Substance: BUDESONIDE\FORMOTEROL FUMARATE DIHYDRATE
     Indication: Dyspnoea
     Dosage: 160 MCG-4.5 MCG/INH INHALATION AEROSOL,1 PUFF(S) INHALED 2 TIMES A DAY AS?NEEDED
     Route: 065
     Dates: start: 20060101
  14. FENOFIBRATE [Concomitant]
     Active Substance: FENOFIBRATE
     Dosage: 160 MILLIGRAM DAILY;
     Route: 048
     Dates: start: 20060101

REACTIONS (23)
  - Alopecia areata [Not Recovered/Not Resolved]
  - Madarosis [Not Recovered/Not Resolved]
  - Hair texture abnormal [Not Recovered/Not Resolved]
  - Hair colour changes [Not Recovered/Not Resolved]
  - Abdominal pain [Recovering/Resolving]
  - Nausea [Recovering/Resolving]
  - Diarrhoea [Recovered/Resolved]
  - Flatulence [Unknown]
  - Abdominal distension [Unknown]
  - Eructation [Unknown]
  - Vomiting [Recovered/Resolved]
  - Headache [Unknown]
  - Constipation [Recovered/Resolved]
  - Fatigue [Not Recovered/Not Resolved]
  - Abdominal discomfort [Recovered/Resolved]
  - Taste disorder [Unknown]
  - Neuropathy peripheral [Unknown]
  - Chest discomfort [Not Recovered/Not Resolved]
  - Pain [Not Recovered/Not Resolved]
  - Gastritis [Unknown]
  - Hot flush [Unknown]
  - Bone pain [Unknown]
  - Abdominal pain upper [Not Recovered/Not Resolved]

NARRATIVE: CASE EVENT DATE: 20130101
